FAERS Safety Report 5822241-9 (Version None)
Quarter: 2008Q3

REPORT INFORMATION
  Report Type: 
  Country: None (occurrence: None)
  Receive Date: 20080725
  Receipt Date: 20080430
  Transmission Date: 20090109
  Serious: No
  Sender: FDA-Public Use
  Company Number: US-AMGEN-KDL272759

PATIENT
  Sex: Female
  Weight: 49.5 kg

DRUGS (11)
  1. PROCRIT [Suspect]
     Indication: RENAL FAILURE CHRONIC
     Dates: start: 20080109
  2. NIFEDIPINE [Concomitant]
  3. CALCIUM WITH VITAMIN D [Concomitant]
  4. CAPTOPRIL [Concomitant]
  5. CELLCEPT [Concomitant]
  6. COUMADIN [Concomitant]
  7. FOSAMAX [Concomitant]
  8. LASIX [Concomitant]
  9. NEPHRO-VITE [Concomitant]
  10. RENAGEL [Concomitant]
  11. ZINC [Concomitant]

REACTIONS (2)
  - ABASIA [None]
  - PAIN IN EXTREMITY [None]
